FAERS Safety Report 21484486 (Version 1)
Quarter: 2022Q4

REPORT INFORMATION
  Report Type: Spontaneous
  Country: FR (occurrence: FR)
  Receive Date: 20221020
  Receipt Date: 20221020
  Transmission Date: 20230112
  Serious: Yes (Other)
  Sender: FDA-Public Use
  Company Number: None

PATIENT
  Age: 88 Year
  Sex: Male
  Weight: 64 kg

DRUGS (8)
  1. CIPROFLOXACIN [Suspect]
     Active Substance: CIPROFLOXACIN
     Indication: Sepsis
     Dosage: CIPROFLOXACINE; UNIT DOSE: 100MG; FREQUENCY TIME : 12HOURS; THERAPY END DATE : NASK
     Route: 065
     Dates: start: 20220610
  2. AMOXICILLIN [Suspect]
     Active Substance: AMOXICILLIN
     Indication: Sepsis
     Dosage: AMOXICILLINE; UNIT DOSE: 12G; FREQUENCY TIME : 1DAY; THERAPY END DATE : NASK
     Route: 065
     Dates: start: 20220606
  3. PAROXETINE [Suspect]
     Active Substance: PAROXETINE
     Indication: Depression
     Dosage: PAROXETINE HYDROCHLORIDE, ANHYDROUS; UNIT DOSE: 1DF; FREQUENCY TIME : 1DAY; THERAPY END DATE : NASK
     Route: 065
     Dates: start: 20220712
  4. PAXLOVID [Suspect]
     Active Substance: NIRMATRELVIR\RITONAVIR
     Indication: COVID-19 pneumonia
     Dosage: UNIT DOSE: 1DF; FREQUENCY TIME : 1DAY; DURATION: 5DAYS
     Dates: start: 20220711, end: 20220716
  5. KARDEGIC [Concomitant]
     Active Substance: ASPIRIN DL-LYSINE
     Indication: Product used for unknown indication
  6. ATORVASTATIN [Concomitant]
     Active Substance: ATORVASTATIN
     Indication: Product used for unknown indication
  7. PANTOPRAZOLE [Concomitant]
     Active Substance: PANTOPRAZOLE
     Indication: Product used for unknown indication
  8. PERINDOPRIL [Concomitant]
     Active Substance: PERINDOPRIL
     Indication: Product used for unknown indication

REACTIONS (1)
  - Rash [Recovering/Resolving]

NARRATIVE: CASE EVENT DATE: 20220731
